FAERS Safety Report 20755967 (Version 1)
Quarter: 2022Q2

REPORT INFORMATION
  Report Type: Spontaneous
  Country: GB (occurrence: GB)
  Receive Date: 20220427
  Receipt Date: 20220427
  Transmission Date: 20220720
  Serious: Yes (Other)
  Sender: FDA-Public Use
  Company Number: GB-SUN PHARMACEUTICAL INDUSTRIES LTD-2022RR-334248

PATIENT
  Age: 70 Year
  Sex: Female

DRUGS (5)
  1. MEROPENEM [Suspect]
     Active Substance: MEROPENEM
     Indication: Campylobacter infection
     Dosage: UNK
     Route: 065
  2. CIPROFLOXACIN [Suspect]
     Active Substance: CIPROFLOXACIN
     Indication: Campylobacter infection
     Route: 065
  3. FOSFOMYCIN [Suspect]
     Active Substance: FOSFOMYCIN
     Indication: Campylobacter infection
     Dosage: 3 GRAM, QOD
     Route: 065
  4. FOSFOMYCIN [Suspect]
     Active Substance: FOSFOMYCIN
     Dosage: UNK
     Route: 065
  5. TETRACYCLINE [Suspect]
     Active Substance: TETRACYCLINE
     Indication: Campylobacter infection
     Dosage: UNK
     Route: 065

REACTIONS (3)
  - Pathogen resistance [Unknown]
  - Disease recurrence [Unknown]
  - Weight increased [Unknown]
